FAERS Safety Report 9961316 (Version 3)
Quarter: 2015Q2

REPORT INFORMATION
  Report Type: Report from Study
  Country: BR (occurrence: BR)
  Receive Date: 20140305
  Receipt Date: 20150526
  Transmission Date: 20150821
  Serious: Yes (Other)
  Sender: FDA-Public Use
  Company Number: PHHY2014BR025003

PATIENT
  Sex: Female
  Weight: 65 kg

DRUGS (7)
  1. SANDOSTATIN LAR DEPOT [Suspect]
     Active Substance: OCTREOTIDE ACETATE
     Indication: ACROMEGALY
     Dosage: 20 MG, QMO
     Route: 065
  2. SANDOSTATIN LAR DEPOT [Suspect]
     Active Substance: OCTREOTIDE ACETATE
     Dosage: 40 MG, QMO
     Route: 065
  3. METFORMINA//METFORMIN [Concomitant]
     Indication: DIABETES MELLITUS
     Dosage: 2 DF, BID (AT LUNCH AND AT DINNER)
     Route: 065
  4. SANDOSTATIN LAR DEPOT [Suspect]
     Active Substance: OCTREOTIDE ACETATE
     Dosage: 30 MG, QMO
     Route: 065
  5. SANDOSTATIN LAR DEPOT [Suspect]
     Active Substance: OCTREOTIDE ACETATE
     Dosage: 30 MG, QMO
     Route: 065
     Dates: start: 20140205
  6. INSULIN [Concomitant]
     Active Substance: INSULIN NOS
     Indication: DIABETES MELLITUS
     Dosage: 40 U, QD
     Route: 065
  7. DOSTINEX [Concomitant]
     Active Substance: CABERGOLINE
     Indication: BLOOD GROWTH HORMONE ABNORMAL
     Dosage: 2 DF, PER WEEK
     Route: 065
     Dates: start: 201402

REACTIONS (10)
  - Malaise [Unknown]
  - Eye swelling [Not Recovered/Not Resolved]
  - Blindness unilateral [Unknown]
  - Cataract [Unknown]
  - Hypoacusis [Not Recovered/Not Resolved]
  - Blood glucose increased [Not Recovered/Not Resolved]
  - Diabetic retinopathy [Unknown]
  - Visual acuity reduced [Unknown]
  - Glaucoma [Unknown]
  - Asthenia [Unknown]
